FAERS Safety Report 6308230-9 (Version None)
Quarter: 2009Q3

REPORT INFORMATION
  Report Type: 
  Country: None (occurrence: None)
  Receive Date: 20090810
  Receipt Date: 20090729
  Transmission Date: 20100115
  Serious: Yes (Hospitalization)
  Sender: FDA-Public Use
  Company Number: 2009AL005011

PATIENT
  Age: 64 Year
  Sex: Female

DRUGS (13)
  1. DIGOXIN [Suspect]
     Dosage: 0.125MG, DAILY, PO
     Route: 048
  2. COUMADIN [Concomitant]
  3. EFFEXOR [Concomitant]
  4. PREVACID [Concomitant]
  5. ATENOLOL [Concomitant]
  6. ZOLOFT [Concomitant]
  7. ASPIRIN [Concomitant]
  8. TRICOR [Concomitant]
  9. CRESTOR [Concomitant]
  10. XANAX [Concomitant]
  11. TAMBOCOR [Concomitant]
  12. ATROVENT [Concomitant]
  13. FEXOPHENADINE HYDROCHLORIDE [Concomitant]

REACTIONS (6)
  - ASTHENIA [None]
  - ATRIAL FIBRILLATION [None]
  - DRUG LEVEL INCREASED [None]
  - FALL [None]
  - FEELING ABNORMAL [None]
  - NAUSEA [None]
